FAERS Safety Report 13259499 (Version 1)
Quarter: 2017Q1

REPORT INFORMATION
  Report Type: Spontaneous
  Country: FR (occurrence: FR)
  Receive Date: 20170222
  Receipt Date: 20170222
  Transmission Date: 20170428
  Serious: Yes (Other)
  Sender: FDA-Public Use
  Company Number: PHHY2017FR024081

PATIENT

DRUGS (2)
  1. ELTROMBOPAG [Suspect]
     Active Substance: ELTROMBOPAG
     Indication: FOETAL EXPOSURE DURING PREGNANCY
     Dosage: MATERNAL DOSE: 50 TO 125 MG DAILY)
     Route: 064
  2. ROMIPLOSTIM [Suspect]
     Active Substance: ROMIPLOSTIM
     Indication: FOETAL EXPOSURE DURING PREGNANCY
     Dosage: MATERNAL DOSE : 250 MCG/WEEK
     Route: 064

REACTIONS (2)
  - Foetal exposure during pregnancy [Unknown]
  - Premature baby [Unknown]
